FAERS Safety Report 5288015-5 (Version None)
Quarter: 2007Q2

REPORT INFORMATION
  Report Type: 
  Country: None (occurrence: None)
  Receive Date: 20070405
  Receipt Date: 20070323
  Transmission Date: 20071010
  Serious: Yes (Disabling)
  Sender: FDA-Public Use
  Company Number: DE-PURDUE-DEU_2007_0003168

PATIENT
  Sex: Male

DRUGS (2)
  1. OXYGESIC 80 MG [Suspect]
     Indication: PAIN
     Dosage: 80 MG, TID
     Route: 048
     Dates: start: 19970101
  2. ANTIDOTES [Concomitant]

REACTIONS (5)
  - CONSTIPATION [None]
  - DEPENDENCE [None]
  - EUPHORIC MOOD [None]
  - METAL POISONING [None]
  - TOOTH EXTRACTION [None]
